FAERS Safety Report 11311670 (Version 1)
Quarter: 2015Q3

REPORT INFORMATION
  Report Type: Spontaneous
  Country: DE (occurrence: DE)
  Receive Date: 20150727
  Receipt Date: 20150727
  Transmission Date: 20151125
  Serious: Yes (Life-Threatening, Hospitalization)
  Sender: FDA-Public Use
  Company Number: DE-SA-2015SA106769

PATIENT
  Age: 53 Year
  Sex: Male

DRUGS (1)
  1. CEREZYME [Suspect]
     Active Substance: IMIGLUCERASE
     Dosage: DOSE:2800 UNIT(S)
     Route: 041
     Dates: start: 201206, end: 20150605

REACTIONS (2)
  - Myocardial infarction [Not Recovered/Not Resolved]
  - Multi-organ failure [Unknown]

NARRATIVE: CASE EVENT DATE: 20150611
